FAERS Safety Report 9879476 (Version 2)
Quarter: 2014Q1

REPORT INFORMATION
  Report Type: Spontaneous
  Country: US (occurrence: US)
  Receive Date: 20140206
  Receipt Date: 20140221
  Transmission Date: 20141002
  Serious: Yes (Death, Hospitalization)
  Sender: FDA-Public Use
  Company Number: US-LUNDBECK-DKLU1097217

PATIENT
  Age: 4 Year
  Sex: Male

DRUGS (2)
  1. SABRIL (FOR ORAL SOLUTION) [Suspect]
     Indication: INFANTILE SPASMS
     Route: 048
     Dates: start: 20130205
  2. SABRIL (FOR ORAL SOLUTION) [Suspect]
     Route: 048
     Dates: start: 20130205

REACTIONS (5)
  - Shock [Fatal]
  - Hypoxia [Fatal]
  - Sepsis [Unknown]
  - Clostridium difficile infection [Unknown]
  - Pneumonia [Unknown]
